FAERS Safety Report 10524071 (Version 1)
Quarter: 2014Q4

REPORT INFORMATION
  Report Type: Spontaneous
  Country: IN (occurrence: IN)
  Receive Date: 20141017
  Receipt Date: 20141017
  Transmission Date: 20150528
  Serious: Yes (Other)
  Sender: FDA-Public Use
  Company Number: IN-AUROBINDO-AUR-APL-2014-10975

PATIENT
  Age: 5 Year

DRUGS (1)
  1. DIVALPROEX [Suspect]
     Active Substance: DIVALPROEX SODIUM
     Indication: INFANTILE SPASMS
     Route: 065

REACTIONS (2)
  - Gingival hyperplasia [Unknown]
  - Developmental delay [Unknown]
